FAERS Safety Report 8401861-1 (Version None)
Quarter: 2012Q2

REPORT INFORMATION
  Report Type: 
  Country: None (occurrence: None)
  Receive Date: 20120601
  Receipt Date: 20120523
  Transmission Date: 20120825
  Serious: Yes (Other)
  Sender: FDA-Public Use
  Company Number: US-JNJFOC-20120518535

PATIENT
  Sex: Female
  Weight: 125.19 kg

DRUGS (6)
  1. LYRICA [Suspect]
     Indication: HYPOAESTHESIA
     Route: 048
  2. LYRICA [Suspect]
     Indication: NEURALGIA
     Route: 048
  3. DURAGESIC-100 [Suspect]
     Indication: PRODUCT USED FOR UNKNOWN INDICATION
     Route: 062
  4. XANAX [Suspect]
     Indication: PRODUCT USED FOR UNKNOWN INDICATION
     Route: 065
  5. TOPAMAX [Suspect]
     Indication: PRODUCT USED FOR UNKNOWN INDICATION
     Route: 048
  6. NORCO [Suspect]
     Indication: PRODUCT USED FOR UNKNOWN INDICATION
     Dosage: 10/325 MG
     Route: 065

REACTIONS (6)
  - ANXIETY [None]
  - HUNGER [None]
  - PANIC ATTACK [None]
  - SURGERY [None]
  - OEDEMA PERIPHERAL [None]
  - WEIGHT INCREASED [None]
